FAERS Safety Report 7786283-9 (Version None)
Quarter: 2011Q3

REPORT INFORMATION
  Report Type: 
  Country: None (occurrence: None)
  Receive Date: 20110929
  Receipt Date: 20110921
  Transmission Date: 20111222
  Serious: Yes (Other)
  Sender: FDA-Public Use
  Company Number: PHEH2010US03466

PATIENT
  Sex: Female

DRUGS (1)
  1. ZOMETA [Suspect]

REACTIONS (17)
  - INJURY [None]
  - PAIN [None]
  - PHYSICAL DISABILITY [None]
  - INFECTION [None]
  - BONE LESION [None]
  - JAW FRACTURE [None]
  - ATELECTASIS [None]
  - HYPOXIA [None]
  - EMOTIONAL DISTRESS [None]
  - DEFORMITY [None]
  - OVERDOSE [None]
  - OSTEONECROSIS OF JAW [None]
  - ANXIETY [None]
  - OSTEOLYSIS [None]
  - DYSPHAGIA [None]
  - PULMONARY OEDEMA [None]
  - RIB FRACTURE [None]
